FAERS Safety Report 5271702-2 (Version None)
Quarter: 2007Q1

REPORT INFORMATION
  Report Type: 
  Country: None (occurrence: None)
  Receive Date: 20070321
  Receipt Date: 20070313
  Transmission Date: 20070707
  Serious: Yes (Hospitalization, Disabling, Other)
  Sender: FDA-Public Use
  Company Number: DK-PFIZER INC-2006155065

PATIENT
  Sex: Female
  Weight: 41.7 kg

DRUGS (4)
  1. GENOTROPIN [Suspect]
     Indication: GROWTH HORMONE DEFICIENCY
     Dosage: DAILY DOSE:1.2MG-FREQ:INTERVAL: DAILY INITIAL DOSE.
     Dates: start: 20040611, end: 20061213
  2. GENOTROPIN [Suspect]
     Dosage: TEXT:38 MICOROGRAMS /KG /DAILY-FREQ:MOST RECENT DOSE
  3. BUDESONIDE [Concomitant]
     Indication: ASTHMA
     Route: 055
  4. BRICANYL [Concomitant]
     Indication: ASTHMA
     Route: 055

REACTIONS (1)
  - MALIGNANT NEOPLASM OF CHOROID [None]
